FAERS Safety Report 17458712 (Version 2)
Quarter: 2020Q3

REPORT INFORMATION
  Report Type: Report from Study
  Country: US (occurrence: US)
  Receive Date: 20200225
  Receipt Date: 20200814
  Transmission Date: 20201102
  Serious: Yes (Hospitalization)
  Sender: FDA-Public Use
  Company Number: US-ACTELION-A-NJ2017-161178

PATIENT
  Age: 32 Year
  Sex: Female
  Weight: 80.27 kg

DRUGS (21)
  1. OPSITE [Suspect]
     Active Substance: POLYURETHANE
     Indication: PRODUCT USED FOR UNKNOWN INDICATION
     Route: 065
  2. VELETRI [Suspect]
     Active Substance: EPOPROSTENOL
     Dosage: 47 NG/KG, PER MIN
     Route: 042
  3. WELLBUTRIN [Concomitant]
     Active Substance: BUPROPION HYDROCHLORIDE
     Dosage: 300/24 HOURS
     Route: 048
  4. VELETRI [Suspect]
     Active Substance: EPOPROSTENOL
     Dosage: 41 NG/KG, PER MIN
     Route: 042
  5. POTASSIUM CHLORIDE. [Concomitant]
     Active Substance: POTASSIUM CHLORIDE
     Dosage: 20 MEQ, QD
     Route: 048
  6. SPIRONOLACTONE. [Concomitant]
     Active Substance: SPIRONOLACTONE
     Dosage: 50 MG, QD
     Route: 048
  7. OPSUMIT [Suspect]
     Active Substance: MACITENTAN
     Indication: PULMONARY ARTERIAL HYPERTENSION
     Dosage: 10 MG, QD
     Route: 048
  8. NEXIUM [Concomitant]
     Active Substance: ESOMEPRAZOLE MAGNESIUM
     Dosage: 40 MG, QD
     Route: 048
  9. EPIPEN [Concomitant]
     Active Substance: EPINEPHRINE
     Dosage: 0.3 MG, UNK
  10. BENADRYL [Concomitant]
     Active Substance: DIPHENHYDRAMINE HYDROCHLORIDE
     Dosage: 50 MG, Q6HRS
     Route: 048
  11. AUVI?Q [Concomitant]
     Active Substance: EPINEPHRINE
     Dosage: 0.3 MG, ONE TIME
  12. ZOFRAN [Concomitant]
     Active Substance: ONDANSETRON HYDROCHLORIDE
     Dosage: 4 MG, Q6HRS, PRN
     Route: 048
  13. VELETRI [Suspect]
     Active Substance: EPOPROSTENOL
     Indication: PULMONARY ARTERIAL HYPERTENSION
     Dosage: 48 NG/KG, PER MIN
     Route: 042
  14. VELETRI [Suspect]
     Active Substance: EPOPROSTENOL
     Dosage: 47.56 NG/KG, PER MIN
     Route: 042
  15. ADCIRCA [Concomitant]
     Active Substance: TADALAFIL
     Dosage: 20 MG, QD (40MG QD)
     Route: 048
  16. ANAKINRA [Concomitant]
     Active Substance: ANAKINRA
     Dosage: 100 MG/0.67 ML
     Route: 058
  17. VELETRI [Suspect]
     Active Substance: EPOPROSTENOL
     Dosage: 1.5 NG/KG, PER MIN
     Route: 042
     Dates: start: 201709
  18. COUMADIN [Concomitant]
     Active Substance: WARFARIN SODIUM
  19. LEVOTHYROXINE. [Concomitant]
     Active Substance: LEVOTHYROXINE
     Dosage: 150 MCG, QD
     Route: 048
  20. LYRICA [Concomitant]
     Active Substance: PREGABALIN
     Dosage: 75 MG, BID
     Route: 048
  21. TORSEMIDE. [Concomitant]
     Active Substance: TORSEMIDE
     Dosage: 20 MG, BID, 60 MG IN AM, 40 MG IN PM
     Route: 048

REACTIONS (22)
  - Chest pain [Unknown]
  - Loss of consciousness [Unknown]
  - Fluid retention [Unknown]
  - Urticaria [Unknown]
  - Pain in jaw [Unknown]
  - Catheter site haemorrhage [Unknown]
  - Condition aggravated [Unknown]
  - Cough [Unknown]
  - Oropharyngeal pain [Unknown]
  - Sepsis [Unknown]
  - Dyspnoea [Unknown]
  - Nausea [Unknown]
  - Application site hypersensitivity [Unknown]
  - Respiratory tract congestion [Unknown]
  - Throat irritation [Unknown]
  - Nasopharyngitis [Unknown]
  - Nasal congestion [Unknown]
  - Device breakage [Unknown]
  - Drug hypersensitivity [Unknown]
  - Blister [Unknown]
  - Palpitations [Recovered/Resolved]
  - Headache [Unknown]

NARRATIVE: CASE EVENT DATE: 20190311
